FAERS Safety Report 8538614-X (Version None)
Quarter: 2012Q3

REPORT INFORMATION
  Report Type: 
  Country: None (occurrence: None)
  Receive Date: 20120718
  Receipt Date: 20120718
  Transmission Date: 20120928
  Serious: Yes (Other)
  Sender: FDA-Public Use
  Company Number: None

PATIENT
  Age: 84 Year
  Sex: Female
  Weight: 71.2147 kg

DRUGS (1)
  1. PRADAXA [Suspect]
     Indication: THROMBOSIS PROPHYLAXIS
     Dosage: 150 MG 2X PER DAY
     Dates: start: 20120216, end: 20120218

REACTIONS (3)
  - HAEMORRHOIDS [None]
  - GASTROINTESTINAL DISORDER [None]
  - HAEMORRHAGE [None]
